FAERS Safety Report 17187887 (Version 3)
Quarter: 2021Q4

REPORT INFORMATION
  Report Type: Spontaneous
  Country: IT (occurrence: IT)
  Receive Date: 20191221
  Receipt Date: 20211013
  Transmission Date: 20220303
  Serious: Yes (Hospitalization, Other)
  Sender: FDA-Public Use
  Company Number: IT-DRREDDYS-GER/ITL/19/0116852

PATIENT
  Age: 48 Year
  Sex: Female

DRUGS (7)
  1. VORICONAZOLE [Suspect]
     Active Substance: VORICONAZOLE
     Indication: Respiratory tract infection fungal
     Dosage: UNK
     Route: 065
  2. AMPHOTERICIN B [Suspect]
     Active Substance: AMPHOTERICIN B
     Indication: Geotrichum infection
     Dosage: UNK
     Route: 065
  3. ANIDULAFUNGIN [Concomitant]
     Active Substance: ANIDULAFUNGIN
     Indication: Antifungal prophylaxis
     Dosage: UNK
     Route: 065
  4. CEFTOLOZANE SULFATE\TAZOBACTAM SODIUM [Concomitant]
     Active Substance: CEFTOLOZANE SULFATE\TAZOBACTAM SODIUM
     Indication: Pseudomonas infection
     Dosage: UNK
     Route: 065
  5. CEFTOLOZANE SULFATE\TAZOBACTAM SODIUM [Concomitant]
     Active Substance: CEFTOLOZANE SULFATE\TAZOBACTAM SODIUM
     Dosage: UNK
     Route: 065
  6. CYTARABINE [Concomitant]
     Active Substance: CYTARABINE
     Indication: Acute myeloid leukaemia
     Dosage: UNK
     Route: 065
  7. QUIZARTINIB [Concomitant]
     Active Substance: QUIZARTINIB
     Indication: Acute myeloid leukaemia
     Dosage: UNK
     Route: 065

REACTIONS (4)
  - Infection [Recovering/Resolving]
  - Skin lesion [Unknown]
  - Fungal infection [Recovering/Resolving]
  - Necrosis [Unknown]
